FAERS Safety Report 21311268 (Version 1)
Quarter: 2022Q3

REPORT INFORMATION
  Report Type: Spontaneous
  Country: US (occurrence: None)
  Receive Date: 20220909
  Receipt Date: 20220909
  Transmission Date: 20221027
  Serious: No
  Sender: FDA-Public Use
  Company Number: US-ARIS GLOBAL-202202-0311

PATIENT
  Sex: Female

DRUGS (23)
  1. OXERVATE [Suspect]
     Active Substance: CENEGERMIN-BKBJ
     Indication: Neurotrophic keratopathy
     Route: 047
     Dates: start: 20220216
  2. OXERVATE [Suspect]
     Active Substance: CENEGERMIN-BKBJ
     Indication: Ulcerative keratitis
  3. OXERVATE [Suspect]
     Active Substance: CENEGERMIN-BKBJ
     Indication: Ulcerative keratitis
  4. ASPIRIN [Concomitant]
     Active Substance: ASPIRIN
  5. VITAMIN B COMPLEX [Concomitant]
     Active Substance: CYANOCOBALAMIN\DEXPANTHENOL\NIACINAMIDE\PYRIDOXINE HYDROCHLORIDE\RIBOFLAVIN 5^-PHOSPHATE SODIUM\THIA
  6. ENALAPRIL MALEATE [Concomitant]
     Active Substance: ENALAPRIL MALEATE
  7. DULOXETINE HYDROCHLORIDE [Concomitant]
     Active Substance: DULOXETINE HYDROCHLORIDE
     Dosage: DELAYED RELEASE
  8. ALLEGRA ALLERGY [Concomitant]
     Active Substance: FEXOFENADINE HYDROCHLORIDE
  9. VITAMIN E [Concomitant]
     Active Substance: .ALPHA.-TOCOPHEROL
     Dosage: 400 UNIT
  10. CALCIUM 600-VIT D3 [Concomitant]
     Dosage: 600 MG-10
  11. VITAMINS [Concomitant]
     Active Substance: VITAMINS
  12. FLONASE ALLERGY RELIEF [Concomitant]
     Active Substance: FLUTICASONE PROPIONATE
  13. ADVAIR DISKUS [Concomitant]
     Active Substance: FLUTICASONE PROPIONATE\SALMETEROL XINAFOATE
     Dosage: 250-50 MCG BLISTER WITH DEVICE
  14. AMLODIPINE BESYLATE [Concomitant]
     Active Substance: AMLODIPINE BESYLATE
  15. SINGULAIR [Concomitant]
     Active Substance: MONTELUKAST SODIUM
  16. ZIRGAN [Concomitant]
     Active Substance: GANCICLOVIR
  17. VALTREX [Concomitant]
     Active Substance: VALACYCLOVIR HYDROCHLORIDE
  18. MOXIFLOXACIN [Concomitant]
     Active Substance: MOXIFLOXACIN
  19. ERYTHROMYCIN [Concomitant]
     Active Substance: ERYTHROMYCIN
  20. RHOPRESSA [Concomitant]
     Active Substance: NETARSUDIL MESYLATE
  21. PREDNISOLONE-NEPAFENAC [Concomitant]
  22. COMBIGAN [Concomitant]
     Active Substance: BRIMONIDINE TARTRATE\TIMOLOL MALEATE
     Dosage: 0.2%-0.5%
  23. LUMIGAN [Concomitant]
     Active Substance: BIMATOPROST

REACTIONS (2)
  - Product dose omission issue [Unknown]
  - Rhinorrhoea [Not Recovered/Not Resolved]
